FAERS Safety Report 7043581-4 (Version None)
Quarter: 2010Q4

REPORT INFORMATION
  Report Type: 
  Country: None (occurrence: None)
  Receive Date: 20101013
  Receipt Date: 20101006
  Transmission Date: 20110411
  Serious: Yes (Congenital Anomaly)
  Sender: FDA-Public Use
  Company Number: A0885985A

PATIENT
  Sex: Female
  Weight: 1.7 kg

DRUGS (5)
  1. ZIAGEN [Suspect]
     Indication: ANTIVIRAL TREATMENT
  2. VIREAD [Suspect]
     Indication: ANTIVIRAL TREATMENT
     Dates: start: 20050101
  3. SUSTIVA [Suspect]
     Indication: ANTIVIRAL TREATMENT
     Dates: end: 20091001
  4. REYATAZ [Suspect]
     Indication: ANTIVIRAL TREATMENT
     Dates: start: 20091119
  5. NORVIR [Suspect]
     Indication: ANTIVIRAL TREATMENT
     Dates: start: 20091119

REACTIONS (8)
  - CARDIOMEGALY [None]
  - CONGENITAL PULMONARY VALVE ATRESIA [None]
  - CONGENITAL TRICUSPID VALVE ATRESIA [None]
  - DRUG EXPOSURE DURING PREGNANCY [None]
  - NEONATAL RESPIRATORY DISTRESS SYNDROME [None]
  - PREMATURE BABY [None]
  - SHORTENED CERVIX [None]
  - VENTRICULAR HYPOPLASIA [None]
